FAERS Safety Report 6069233-5 (Version None)
Quarter: 2009Q1

REPORT INFORMATION
  Report Type: 
  Country: None (occurrence: None)
  Receive Date: 20090206
  Receipt Date: 20090130
  Transmission Date: 20090719
  Serious: Yes (Other)
  Sender: FDA-Public Use
  Company Number: PHBS2009SE00659

PATIENT
  Age: 57 Year
  Sex: Female

DRUGS (7)
  1. LIORESAL [Suspect]
     Indication: HUNTINGTON'S CHOREA
     Dosage: 15 MG/DAY
  2. LIORESAL [Interacting]
     Dosage: 60 MG/DAY
  3. LIORESAL [Interacting]
     Dosage: 90 MG/DAY
  4. LITHIUM [Interacting]
     Indication: HUNTINGTON'S CHOREA
     Dosage: UNK
  5. IMIPRAMINE [Concomitant]
     Dosage: 75 MG
  6. CLOPENTHIXOL [Concomitant]
     Dosage: 15 MG
  7. CHLORPROMAZINE [Concomitant]
     Dosage: 25 MG

REACTIONS (4)
  - CONDITION AGGRAVATED [None]
  - DRUG INTERACTION [None]
  - MOVEMENT DISORDER [None]
  - SOMNOLENCE [None]
